FAERS Safety Report 5153417-4 (Version None)
Quarter: 2006Q4

REPORT INFORMATION
  Report Type: 
  Country: None (occurrence: None)
  Receive Date: 20061114
  Receipt Date: 20061108
  Transmission Date: 20070319
  Serious: Yes (Life-Threatening, Other)
  Sender: FDA-Public Use
  Company Number: 2006S1000178

PATIENT
  Age: 2 Day
  Sex: Male

DRUGS (14)
  1. NITRIC OXIDE [Suspect]
     Indication: LUNG DISORDER
     Dosage: 5 PPM; INH_GAS; INH; CONT
     Route: 055
     Dates: start: 20060829, end: 20060918
  2. NITRIC OXIDE [Suspect]
     Indication: PROPHYLAXIS
     Dosage: 5 PPM; INH_GAS; INH; CONT
     Route: 055
     Dates: start: 20060829, end: 20060918
  3. PENICILLIN G [Concomitant]
  4. TOBRAMYCIN [Concomitant]
  5. HYDROCORTISONE [Concomitant]
  6. AMINOPHYLLINE [Concomitant]
  7. RANITIDINE [Concomitant]
  8. MEROPENEM [Concomitant]
  9. PHENOBARBITAL TAB [Concomitant]
  10. HYDROCORTISONE [Concomitant]
  11. AMINOPHYLLINE [Concomitant]
  12. RANITIDINE [Concomitant]
  13. FLUCONAZOLE [Concomitant]
  14. VANCOMYCIN [Concomitant]

REACTIONS (6)
  - ACIDOSIS [None]
  - BLOOD PRESSURE DECREASED [None]
  - CEREBRAL HAEMORRHAGE [None]
  - PLATELET COUNT DECREASED [None]
  - PULMONARY HAEMORRHAGE [None]
  - STAPHYLOCOCCAL SEPSIS [None]
